FAERS Safety Report 10044896 (Version 1)
Quarter: 2014Q1

REPORT INFORMATION
  Report Type: Spontaneous
  Country: US (occurrence: US)
  Receive Date: 20140328
  Receipt Date: 20140328
  Transmission Date: 20141002
  Serious: Yes (Hospitalization)
  Sender: FDA-Public Use
  Company Number: US-GLAXOSMITHKLINE-A1066393A

PATIENT
  Age: 52 Year
  Sex: Male

DRUGS (2)
  1. FLOLAN [Suspect]
     Indication: COR PULMONALE CHRONIC
     Dosage: 56NGKM UNKNOWN
     Route: 042
     Dates: start: 20050510
  2. COUMADIN [Concomitant]

REACTIONS (2)
  - Medical device complication [Unknown]
  - Device related infection [Unknown]
